FAERS Safety Report 24717793 (Version 1)
Quarter: 2024Q4

REPORT INFORMATION
  Report Type: Spontaneous
  Country: US (occurrence: US)
  Receive Date: 20241210
  Receipt Date: 20241210
  Transmission Date: 20250114
  Serious: No
  Sender: MARINUS PHARMACEUTICALS
  Company Number: US-MARINUS PHARMACEUTICALS, INC.-MAR2024000243

PATIENT

DRUGS (1)
  1. ZTALMY [Suspect]
     Active Substance: GANAXOLONE
     Indication: Product used for unknown indication
     Dosage: 6MILLILITES IN THE AM, 7 MILLILITRES MIDDAY AND IN THE PM
     Route: 048

REACTIONS (3)
  - Product dose omission issue [Unknown]
  - Refusal of treatment by patient [Unknown]
  - Food refusal [Unknown]
